FAERS Safety Report 8375906-1 (Version None)
Quarter: 2012Q2

REPORT INFORMATION
  Report Type: 
  Country: None (occurrence: None)
  Receive Date: 20120518
  Receipt Date: 20120507
  Transmission Date: 20120825
  Serious: Yes (Death, Other)
  Sender: FDA-Public Use
  Company Number: 2012P1023642

PATIENT
  Age: 23 Year
  Sex: Male
  Weight: 75 kg

DRUGS (2)
  1. HYDROMORPHINE (NO PREF. NAME) [Suspect]
     Indication: PAIN
     Dosage: 3 MG; Q2HX3; IV
     Route: 042
  2. MORPHINE [Suspect]
     Indication: PAIN
     Dosage: 10 MG; Q2H, PRN; IV
     Route: 042

REACTIONS (4)
  - OVERDOSE [None]
  - VOMITING [None]
  - DRUG PRESCRIBING ERROR [None]
  - LOSS OF CONSCIOUSNESS [None]
